FAERS Safety Report 16458560 (Version 1)
Quarter: 2019Q2

REPORT INFORMATION
  Report Type: Spontaneous
  Country: US (occurrence: US)
  Receive Date: 20190620
  Receipt Date: 20190620
  Transmission Date: 20190711
  Serious: No
  Sender: FDA-Public Use
  Company Number: US-THERAPEUTICSMD-2019TMD00459

PATIENT
  Age: 65 Year
  Sex: Female
  Weight: 61.22 kg

DRUGS (3)
  1. IMVEXXY [Suspect]
     Active Substance: ESTRADIOL
     Indication: VULVOVAGINAL DRYNESS
     Dosage: 10 ?G , 1X/WEEK BEFORE BED
     Route: 067
     Dates: start: 201812, end: 2019
  2. IMVEXXY [Suspect]
     Active Substance: ESTRADIOL
     Indication: ATROPHIC VULVOVAGINITIS
     Dosage: 10 ?G, 2X/WEEK BEFORE BED
     Route: 067
     Dates: start: 2019, end: 20190314
  3. VAGIFEM [Concomitant]
     Active Substance: ESTRADIOL
     Dosage: UNK
     Dates: end: 201901

REACTIONS (14)
  - Perineal rash [Recovering/Resolving]
  - Folliculitis [Recovering/Resolving]
  - Skin fissures [Recovering/Resolving]
  - Dysuria [Recovering/Resolving]
  - Perineal pain [Recovering/Resolving]
  - Dry skin [Recovering/Resolving]
  - Vaginal discharge [Recovering/Resolving]
  - Vulvovaginal burning sensation [Recovering/Resolving]
  - Hyperhidrosis [Recovering/Resolving]
  - Off label use [Recovered/Resolved]
  - Pain in extremity [Recovering/Resolving]
  - Rash vesicular [Recovering/Resolving]
  - Anorectal discomfort [Recovering/Resolving]
  - Skin abrasion [Recovering/Resolving]

NARRATIVE: CASE EVENT DATE: 201812
